FAERS Safety Report 4664925-4 (Version None)
Quarter: 2005Q2

REPORT INFORMATION
  Report Type: 
  Country: None (occurrence: None)
  Receive Date: 20050518
  Receipt Date: 20050511
  Transmission Date: 20051028
  Serious: Yes (Life-Threatening)
  Sender: FDA-Public Use
  Company Number: 2005AP02749

PATIENT
  Age: 28666 Day
  Sex: Female

DRUGS (4)
  1. XYLOCAINE VISCOUS [Suspect]
     Indication: LOCAL ANAESTHESIA
     Route: 048
     Dates: start: 20050320, end: 20050320
  2. XYLOCAINE [Suspect]
     Indication: LOCAL ANAESTHESIA
     Route: 048
     Dates: start: 20050320, end: 20050320
  3. XYLOCAINE [Suspect]
     Indication: LOCAL ANAESTHESIA
     Route: 048
     Dates: start: 20050320, end: 20050320
  4. OMEPRAL [Concomitant]
     Indication: GASTRIC ULCER HAEMORRHAGE
     Route: 042
     Dates: start: 20050319, end: 20050322

REACTIONS (3)
  - ACUTE RESPIRATORY FAILURE [None]
  - ANAPHYLACTIC REACTION [None]
  - LARYNGEAL OEDEMA [None]
